FAERS Safety Report 4449421-1 (Version None)
Quarter: 2004Q3

REPORT INFORMATION
  Report Type: 
  Country: None (occurrence: None)
  Receive Date: 20040909
  Receipt Date: 20040831
  Transmission Date: 20050211
  Serious: Yes (Hospitalization)
  Sender: FDA-Public Use
  Company Number: A0522458A

PATIENT
  Age: 81 Year
  Sex: Female
  Weight: 52.209 kg

DRUGS (6)
  1. LOTRONEX [Suspect]
     Indication: IRRITABLE BOWEL SYNDROME
     Dosage: ORAL
     Route: 048
     Dates: start: 20040807, end: 20040809
  2. ALENDRONATE SODIUM [Concomitant]
  3. TELMISARTAN [Concomitant]
  4. METROPROLOL SUCCINATE [Concomitant]
  5. AMLODIPINE [Concomitant]
  6. CHOLESTYRAMINE [Concomitant]

REACTIONS (4)
  - COLITIS ISCHAEMIC [None]
  - COMPUTERISED TOMOGRAM ABNORMAL [None]
  - CONSTIPATION [None]
  - OEDEMA MUCOSAL [None]
